FAERS Safety Report 7390148-4 (Version None)
Quarter: 2011Q2

REPORT INFORMATION
  Report Type: 
  Country: None (occurrence: None)
  Receive Date: 20110401
  Receipt Date: 20110321
  Transmission Date: 20111010
  Serious: Yes (Other)
  Sender: FDA-Public Use
  Company Number: PHHY2011US22788

PATIENT
  Sex: Female

DRUGS (5)
  1. THYROID HORMONES [Concomitant]
     Dosage: UNK
  2. ISOSORBIDE DINITRATE [Concomitant]
     Dosage: UNK
  3. ASPIRIN [Concomitant]
     Dosage: UNK
  4. GENTEAL [Suspect]
     Dosage: UNK
  5. LAMISIL                            /00992601/ [Concomitant]
     Dosage: UNK

REACTIONS (5)
  - PTERYGIUM [None]
  - DIZZINESS [None]
  - OEDEMA [None]
  - TEAR DISCOLOURATION [None]
  - CONTUSION [None]
